FAERS Safety Report 17965524 (Version 3)
Quarter: 2020Q3

REPORT INFORMATION
  Report Type: Spontaneous
  Country: US (occurrence: US)
  Receive Date: 20200630
  Receipt Date: 20200824
  Transmission Date: 20201103
  Serious: Yes (Other)
  Sender: FDA-Public Use
  Company Number: US-ASTRAZENECA-2020SE82210

PATIENT
  Age: 64 Year
  Sex: Female
  Weight: 88.5 kg

DRUGS (3)
  1. BYDUREON BCISE [Suspect]
     Active Substance: EXENATIDE
     Indication: TYPE 2 DIABETES MELLITUS
     Route: 065
  2. BYDUREON [Suspect]
     Active Substance: EXENATIDE
     Indication: TYPE 2 DIABETES MELLITUS
     Route: 065
  3. BYDUREON [Suspect]
     Active Substance: EXENATIDE
     Indication: TYPE 2 DIABETES MELLITUS
     Route: 065

REACTIONS (19)
  - Antiphospholipid antibodies [Unknown]
  - Weight decreased [Unknown]
  - Fatigue [Unknown]
  - Device leakage [Unknown]
  - Fibromyalgia [Unknown]
  - Injection site mass [Recovered/Resolved]
  - Sjogren^s syndrome [Unknown]
  - Vein rupture [Unknown]
  - Injection site haemorrhage [Unknown]
  - Injection site injury [Unknown]
  - Swelling [Unknown]
  - Asthenia [Unknown]
  - Antiphospholipid syndrome [Unknown]
  - Hernia [Unknown]
  - Autoimmune thyroiditis [Unknown]
  - Weight increased [Unknown]
  - Drug ineffective [Unknown]
  - Contusion [Not Recovered/Not Resolved]
  - Wrong technique in device usage process [Unknown]

NARRATIVE: CASE EVENT DATE: 2020
